FAERS Safety Report 5330634-1 (Version None)
Quarter: 2007Q2

REPORT INFORMATION
  Report Type: 
  Country: None (occurrence: None)
  Receive Date: 20070516
  Receipt Date: 20070502
  Transmission Date: 20071010
  Serious: Yes (Hospitalization)
  Sender: FDA-Public Use
  Company Number: 07TW000886

PATIENT
  Age: 60 Year
  Sex: Female

DRUGS (6)
  1. LITHIUM CARBONATE [Suspect]
     Indication: BIPOLAR DISORDER
     Dosage: SEE IMAGE
  2. AMLODIPINE BESYLATE [Concomitant]
  3. VALPROATE SODIUM [Concomitant]
  4. CLONAZEPAM [Concomitant]
  5. VALSARTAN [Concomitant]
  6. RISPERIDONE [Concomitant]

REACTIONS (10)
  - AZOTAEMIA [None]
  - COORDINATION ABNORMAL [None]
  - DRUG INTERACTION [None]
  - DRUG TOXICITY [None]
  - FALL [None]
  - GAIT DISTURBANCE [None]
  - HYPOKINESIA [None]
  - MANIA [None]
  - MUSCLE RIGIDITY [None]
  - TREMOR [None]
